FAERS Safety Report 14303917 (Version 1)
Quarter: 2017Q4

REPORT INFORMATION
  Report Type: Spontaneous
  Country: JP (occurrence: JP)
  Receive Date: 20171219
  Receipt Date: 20171219
  Transmission Date: 20180321
  Serious: Yes (Hospitalization)
  Sender: FDA-Public Use
  Company Number: JP-OTSUKA-JP-2014-13590

PATIENT
  Age: 61 Year
  Sex: Male

DRUGS (14)
  1. ABILIFY [Suspect]
     Active Substance: ARIPIPRAZOLE
     Indication: DEPRESSION
     Dosage: 3 MG, QD
     Route: 048
     Dates: start: 20140328, end: 20140410
  2. MEDEPOLIN [Concomitant]
     Active Substance: ALPRAZOLAM
     Dosage: 0.8 MG, QD
     Route: 048
     Dates: start: 20130925, end: 20140421
  3. HALCION [Concomitant]
     Active Substance: TRIAZOLAM
     Dosage: 0.25 MG, QD
     Route: 048
     Dates: start: 20140411
  4. HOCHU-EKKI-TO [Concomitant]
     Active Substance: UNSPECIFIED INGREDIENT
     Dosage: GRANULES
     Dates: start: 20140328, end: 20140421
  5. CYMBALTA [Concomitant]
     Active Substance: DULOXETINE HYDROCHLORIDE
     Dosage: 20-40 MG MILLIGRAM(S), DAILY DOSE
     Route: 048
     Dates: start: 20130918, end: 20140421
  6. SENNOSIDE                          /00571901/ [Concomitant]
     Active Substance: SENNOSIDES A AND B
     Dosage: 24 MG, QD
     Route: 048
     Dates: start: 20140328, end: 20140426
  7. ROHYPNOL [Concomitant]
     Active Substance: FLUNITRAZEPAM
     Dosage: 2 MG, QD
     Route: 048
     Dates: start: 20130918
  8. ABILIFY [Suspect]
     Active Substance: ARIPIPRAZOLE
     Dosage: 6 MG, QD
     Route: 048
     Dates: start: 20140411, end: 20140421
  9. HOCHUEKKITO                        /07973001/ [Concomitant]
     Active Substance: HERBALS
     Dosage: UNK
     Route: 048
     Dates: start: 20140328, end: 20140421
  10. FLUNITRAZEPAM [Concomitant]
     Active Substance: FLUNITRAZEPAM
     Dosage: TABLET
     Dates: start: 20130918
  11. GANATON [Concomitant]
     Active Substance: ITOPRIDE
     Dosage: 100 MG, QD
     Route: 048
     Dates: start: 20130918, end: 20140421
  12. ALPRAZOLAM. [Concomitant]
     Active Substance: ALPRAZOLAM
     Dosage: TABLET
     Dates: start: 20130925, end: 20140421
  13. TRIAZOLAM. [Concomitant]
     Active Substance: TRIAZOLAM
     Dosage: TABLET
     Dates: start: 20140411
  14. CYMBALTA [Concomitant]
     Active Substance: DULOXETINE HYDROCHLORIDE
     Dosage: CAPSULE
     Dates: start: 20130918, end: 20140421

REACTIONS (3)
  - Dysphagia [Recovered/Resolved]
  - Dehydration [Unknown]
  - Pneumonia aspiration [Recovered/Resolved]

NARRATIVE: CASE EVENT DATE: 201404
